FAERS Safety Report 4901705-6 (Version None)
Quarter: 2006Q1

REPORT INFORMATION
  Report Type: 
  Country: None (occurrence: None)
  Receive Date: 20060206
  Receipt Date: 20051129
  Transmission Date: 20060701
  Serious: No
  Sender: FDA-Public Use
  Company Number: US-BRISTOL-MYERS SQUIBB COMPANY-13199732

PATIENT

DRUGS (2)
  1. TAXOL [Suspect]
     Route: 042
  2. CARBOPLATIN [Suspect]
     Route: 042

REACTIONS (1)
  - WHITE BLOOD CELL COUNT DECREASED [None]
